FAERS Safety Report 11908173 (Version 1)
Quarter: 2016Q1

REPORT INFORMATION
  Report Type: Spontaneous
  Country: US (occurrence: US)
  Receive Date: 20160111
  Receipt Date: 20160111
  Transmission Date: 20160526
  Serious: No
  Sender: FDA-Public Use
  Company Number: ALCN2016US000508

PATIENT
  Sex: Male

DRUGS (2)
  1. VIGAMOX [Suspect]
     Active Substance: MOXIFLOXACIN HYDROCHLORIDE
     Indication: PREOPERATIVE CARE
     Dosage: 1 GTT, TID
     Route: 047
     Dates: start: 20160104, end: 20160105
  2. DUREZOL [Suspect]
     Active Substance: DIFLUPREDNATE
     Indication: PREOPERATIVE CARE
     Dosage: 1 GTT, TID
     Route: 047
     Dates: start: 20160104, end: 20160105

REACTIONS (2)
  - Blood pressure increased [Recovering/Resolving]
  - Off label use [Unknown]

NARRATIVE: CASE EVENT DATE: 20160105
